FAERS Safety Report 14997869 (Version 1)
Quarter: 2018Q2

REPORT INFORMATION
  Report Type: Spontaneous
  Country: US (occurrence: US)
  Receive Date: 20180611
  Receipt Date: 20180611
  Transmission Date: 20180711
  Serious: No
  Sender: FDA-Public Use
  Company Number: US-FOUNDATIONCONSUMERHC-2018-US-006960

PATIENT
  Age: 47 Year
  Sex: Female
  Weight: 127.01 kg

DRUGS (4)
  1. DEPAKOTE UNSPECIFIED [Concomitant]
     Dosage: UNK
     Route: 048
  2. UNSPECIFIED ^INHALERS^ [Concomitant]
  3. PLAN B ONE-STEP [Suspect]
     Active Substance: LEVONORGESTREL
     Indication: POST COITAL CONTRACEPTION
     Dosage: 1.5MG
     Route: 048
     Dates: start: 20180424, end: 20180424
  4. TEGRETOL UNSPECIFIED [Concomitant]
     Dosage: UNK
     Route: 048

REACTIONS (1)
  - Menstrual disorder [Recovered/Resolved]

NARRATIVE: CASE EVENT DATE: 20180425
